FAERS Safety Report 7642118-6 (Version None)
Quarter: 2011Q3

REPORT INFORMATION
  Report Type: 
  Country: None (occurrence: None)
  Receive Date: 20110728
  Receipt Date: 20110718
  Transmission Date: 20111222
  Serious: Yes (Disabling, Other)
  Sender: FDA-Public Use
  Company Number: IT-TEVA-293132ISR

PATIENT
  Age: 36 Year
  Sex: Male

DRUGS (3)
  1. RIBAVIRIN [Suspect]
  2. PREGINTERFERON ALFA [Suspect]
     Indication: HEPATITIS C
     Dates: start: 20040101
  3. RIBAVIRIN [Suspect]
     Indication: HEPATITIS C
     Dates: start: 20040101

REACTIONS (1)
  - VOGT-KOYANAGI-HARADA SYNDROME [None]
